FAERS Safety Report 22309880 (Version 1)
Quarter: 2023Q2

REPORT INFORMATION
  Report Type: Spontaneous
  Country: US (occurrence: None)
  Receive Date: 20230510
  Receipt Date: 20230510
  Transmission Date: 20230722
  Serious: Yes (Other)
  Sender: FDA-Public Use
  Company Number: None

PATIENT
  Age: 38 Year
  Sex: Female
  Weight: 53.1 kg

DRUGS (7)
  1. DEXTROAMPHET SACCHARAT, AMPHET ASPARTATE, DEXTROAMPHET SULFATE AND AMP [Suspect]
     Active Substance: AMPHETAMINE ASPARTATE\AMPHETAMINE ASPARTATE MONOHYDRATE\AMPHETAMINE SULFATE\DEXTROAMPHETAMINE SACCHA
     Indication: Attention deficit hyperactivity disorder
     Dosage: OTHER QUANTITY : 1 TABLET(S);?FREQUENCY : 3 TIMES A DAY;?
     Route: 048
     Dates: start: 20230502, end: 20230508
  2. ADVAIR HFA [Concomitant]
     Active Substance: FLUTICASONE PROPIONATE\SALMETEROL XINAFOATE
  3. ALBUTEROL [Concomitant]
     Active Substance: ALBUTEROL
  4. TRAZODONE [Concomitant]
     Active Substance: TRAZODONE HYDROCHLORIDE
  5. methyl B Vitamin [Concomitant]
  6. probitics [Concomitant]
  7. Vitamin C + immune [Concomitant]

REACTIONS (16)
  - Product substitution issue [None]
  - Product substitution issue [None]
  - Nausea [None]
  - Vomiting [None]
  - Dyspnoea [None]
  - Pyrexia [None]
  - Diarrhoea [None]
  - Migraine [None]
  - Anxiety [None]
  - Musculoskeletal stiffness [None]
  - Hypotension [None]
  - Weight decreased [None]
  - Abdominal pain upper [None]
  - Pain [None]
  - Asthenia [None]
  - Suspected product quality issue [None]

NARRATIVE: CASE EVENT DATE: 20230502
